FAERS Safety Report 4747511-7 (Version None)
Quarter: 2005Q3

REPORT INFORMATION
  Report Type: 
  Country: None (occurrence: None)
  Receive Date: 20050818
  Receipt Date: 20050808
  Transmission Date: 20060218
  Serious: Yes (Life-Threatening)
  Sender: FDA-Public Use
  Company Number: GB-BRISTOL-MYERS SQUIBB COMPANY-13066584

PATIENT
  Age: 56 Year
  Sex: Female

DRUGS (11)
  1. TRAZODONE HCL [Suspect]
     Indication: MYOCARDIAL ISCHAEMIA
     Route: 048
     Dates: start: 20050704
  2. ASPIRIN [Suspect]
     Route: 048
     Dates: end: 20050718
  3. PREDNISOLONE [Suspect]
     Indication: RHEUMATOID ARTHRITIS
     Route: 048
  4. FOLIC ACID [Concomitant]
     Indication: RHEUMATOID ARTHRITIS
     Route: 048
  5. SIMVASTATIN [Concomitant]
     Indication: BLOOD CHOLESTEROL INCREASED
     Route: 048
  6. DILTIAZEM HCL [Concomitant]
     Indication: MYOCARDIAL ISCHAEMIA
     Route: 048
  7. BENDROFLUAZIDE [Concomitant]
     Route: 048
  8. FLUCLOXACILLIN [Concomitant]
     Route: 048
  9. DESLORATADINE [Concomitant]
     Indication: SEASONAL ALLERGY
     Route: 048
  10. METHOTREXATE [Concomitant]
     Indication: RHEUMATOID ARTHRITIS
     Route: 048
  11. ESOMEPRAZOLE [Concomitant]
     Indication: PROPHYLAXIS AGAINST GASTROINTESTINAL ULCER
     Route: 048
     Dates: end: 20050720

REACTIONS (1)
  - GASTROINTESTINAL HAEMORRHAGE [None]
